FAERS Safety Report 7308616-X (Version None)
Quarter: 2011Q1

REPORT INFORMATION
  Report Type: 
  Country: None (occurrence: None)
  Receive Date: 20110211
  Receipt Date: 20110203
  Transmission Date: 20110831
  Serious: Yes (Hospitalization)
  Sender: FDA-Public Use
  Company Number: 019494

PATIENT
  Sex: Female

DRUGS (6)
  1. CIMZIA [Suspect]
     Indication: RHEUMATOID ARTHRITIS
     Dosage: (200 MG 1X/2 WEEKS SUBCUTANEOUS)
     Route: 058
     Dates: start: 20100318
  2. PREDNISOLONE [Concomitant]
  3. L-THYROXINE /00068001/ [Concomitant]
  4. PANTOPRAZOLE [Concomitant]
  5. QUENSYL [Concomitant]
  6. OMEPRAZOLE [Concomitant]

REACTIONS (5)
  - NAUSEA [None]
  - VOMITING [None]
  - GASTROENTERITIS [None]
  - CHILLS [None]
  - INFECTION [None]
